FAERS Safety Report 19968631 (Version 22)
Quarter: 2023Q4

REPORT INFORMATION
  Report Type: Spontaneous
  Country: US (occurrence: US)
  Receive Date: 20211019
  Receipt Date: 20231206
  Transmission Date: 20240110
  Serious: Yes (Other)
  Sender: FDA-Public Use
  Company Number: US-PFIZER INC-202101341073

PATIENT
  Age: 68 Year
  Sex: Female
  Weight: 57.1 kg

DRUGS (9)
  1. IBRANCE [Suspect]
     Active Substance: PALBOCICLIB
     Indication: Breast cancer female
     Dosage: 125 MG (ONLY TOOK FOR 1 WEEK)
     Dates: start: 202110, end: 202110
  2. IBRANCE [Suspect]
     Active Substance: PALBOCICLIB
     Dosage: 100 MG FOR 3WKS AND 1 WK OFF
     Dates: end: 20220208
  3. IBRANCE [Suspect]
     Active Substance: PALBOCICLIB
     Dosage: 75 MG 3 WKS AND 1 WK OFF
     Route: 048
     Dates: end: 20220809
  4. IBRANCE [Suspect]
     Active Substance: PALBOCICLIB
     Dosage: 75 MG 2 WKS AND 2 WKS OFF. TAKE WITH OR WITHOUT FOOD
     Route: 048
  5. LETROZOLE [Concomitant]
     Active Substance: LETROZOLE
     Dosage: 2.5 MG, 1X/DAY
     Dates: start: 202108
  6. PRAVASTATIN [Concomitant]
     Active Substance: PRAVASTATIN
     Dosage: 20 MG, 1X/DAY
     Dates: start: 2015
  7. HYDROCHLOROTHIAZIDE\LISINOPRIL [Concomitant]
     Active Substance: HYDROCHLOROTHIAZIDE\LISINOPRIL
     Dosage: 10-12.5 MG 1 DAILY
     Dates: start: 2013
  8. VITAMIN D3 [Concomitant]
     Active Substance: CHOLECALCIFEROL
     Dosage: 1000 IU, 1X/DAY
  9. ADVIL [Concomitant]
     Active Substance: IBUPROFEN
     Dosage: TAKE 200 MG BY MOUTH EVERY 6 HOURS AS NEEDED.
     Route: 048

REACTIONS (4)
  - Neutropenia [Recovered/Resolved]
  - Fatigue [Unknown]
  - Neutrophil count decreased [Unknown]
  - Off label use [Unknown]

NARRATIVE: CASE EVENT DATE: 20211001
